FAERS Safety Report 8379539-2 (Version None)
Quarter: 2012Q1

REPORT INFORMATION
  Report Type: 
  Country: None (occurrence: None)
  Receive Date: 20120323
  Receipt Date: 20110325
  Transmission Date: 20120608
  Serious: Yes (Hospitalization)
  Sender: FDA-Public Use
  Company Number: 163-21880-11033137

PATIENT
  Age: 70 Year
  Sex: Female
  Weight: 55.3388 kg

DRUGS (5)
  1. EXJADE [Concomitant]
  2. REVLIMID [Suspect]
     Indication: MYELODYSPLASTIC SYNDROME
     Dosage: 5 MG, DAILY X 21 DAYS, PO; 5 MG, DAILY X 21 DAYS, PO; 5MG-10MG, DAILY, PO; 5 MG, 1 IN 1 D, PO
     Route: 048
     Dates: start: 20110301
  3. REVLIMID [Suspect]
     Indication: MYELODYSPLASTIC SYNDROME
     Dosage: 5 MG, DAILY X 21 DAYS, PO; 5 MG, DAILY X 21 DAYS, PO; 5MG-10MG, DAILY, PO; 5 MG, 1 IN 1 D, PO
     Route: 048
     Dates: start: 20101001
  4. REVLIMID [Suspect]
     Indication: MYELODYSPLASTIC SYNDROME
     Dosage: 5 MG, DAILY X 21 DAYS, PO; 5 MG, DAILY X 21 DAYS, PO; 5MG-10MG, DAILY, PO; 5 MG, 1 IN 1 D, PO
     Route: 048
     Dates: start: 20100801
  5. REVLIMID [Suspect]
     Indication: MYELODYSPLASTIC SYNDROME
     Dosage: 5 MG, DAILY X 21 DAYS, PO; 5 MG, DAILY X 21 DAYS, PO; 5MG-10MG, DAILY, PO; 5 MG, 1 IN 1 D, PO
     Route: 048
     Dates: start: 20101101

REACTIONS (1)
  - PULMONARY OEDEMA [None]
